FAERS Safety Report 11360573 (Version 1)
Quarter: 2015Q3

REPORT INFORMATION
  Report Type: Report from Study
  Country: US (occurrence: US)
  Receive Date: 20150810
  Receipt Date: 20150810
  Transmission Date: 20151125
  Serious: No
  Sender: FDA-Public Use
  Company Number: PHEH2015US011299

PATIENT
  Sex: Male

DRUGS (4)
  1. EXTAVIA [Suspect]
     Active Substance: INTERFERON BETA-1B
     Indication: MULTIPLE SCLEROSIS
     Dosage: 0.062 MG, QOD (WEEKS 1-2: 0.0625 MG (0.25 ML))
     Route: 058
     Dates: start: 201504
  2. EXTAVIA [Suspect]
     Active Substance: INTERFERON BETA-1B
     Dosage: 0.25 MG, QOD (WEEKS 7+: 0.25 MG (1 ML)) AND MAINTENANCE
     Route: 058
  3. EXTAVIA [Suspect]
     Active Substance: INTERFERON BETA-1B
     Dosage: 0.125 MG, QOD (WEEKS 3-4: 0.125 MG (0.5 ML))
     Route: 058
  4. EXTAVIA [Suspect]
     Active Substance: INTERFERON BETA-1B
     Dosage: 0.187 MG, QOD (WEEKS 5-6: 0.1875 MG (0.75 ML))
     Route: 058

REACTIONS (2)
  - Injection site erythema [Not Recovered/Not Resolved]
  - Weight decreased [Not Recovered/Not Resolved]
